FAERS Safety Report 10626022 (Version 1)
Quarter: 2014Q4

REPORT INFORMATION
  Report Type: Spontaneous
  Country: FR (occurrence: FR)
  Receive Date: 20141204
  Receipt Date: 20141204
  Transmission Date: 20150529
  Serious: Yes (Hospitalization)
  Sender: FDA-Public Use
  Company Number: FR-PFIZER INC-2014329164

PATIENT
  Age: 51 Year
  Sex: Male

DRUGS (4)
  1. TEMERIT [Concomitant]
     Active Substance: NEBIVOLOL
     Dosage: 5 MG, DAILY
     Route: 048
  2. ZYVOXID [Suspect]
     Active Substance: LINEZOLID
     Indication: ENTEROCOCCAL INFECTION
     Dosage: 600 MG, 2X/DAY
     Dates: start: 20141101, end: 20141103
  3. MODOPAR [Concomitant]
     Active Substance: BENSERAZIDE HYDROCHLORIDE\LEVODOPA
     Indication: PARKINSON^S DISEASE
     Dosage: 50 MG/12.5 MG, 4X/DAY
     Route: 048
  4. DUPHALAC [Concomitant]
     Active Substance: LACTULOSE
     Dosage: 3 DF, DAILY
     Route: 048

REACTIONS (2)
  - Vascular purpura [Recovered/Resolved]
  - Mouth haemorrhage [Recovered/Resolved]

NARRATIVE: CASE EVENT DATE: 20141103
